FAERS Safety Report 12706341 (Version 1)
Quarter: 2016Q3

REPORT INFORMATION
  Report Type: Spontaneous
  Country: US (occurrence: US)
  Receive Date: 20160901
  Receipt Date: 20160901
  Transmission Date: 20161109
  Serious: No
  Sender: FDA-Public Use
  Company Number: US-BAYER-2016-170163

PATIENT
  Age: 78 Year
  Sex: Female
  Weight: 79.82 kg

DRUGS (5)
  1. MAGNESIUM OXIDE. [Concomitant]
     Active Substance: MAGNESIUM OXIDE
  2. VALSARTAN. [Concomitant]
     Active Substance: VALSARTAN
  3. POTASSIUM [Concomitant]
     Active Substance: POTASSIUM
  4. MIRALAX [Suspect]
     Active Substance: POLYETHYLENE GLYCOL 3350
     Indication: GASTROINTESTINAL DISORDER
     Dosage: 1 DF, 2-3 TIMES A WEEK
     Route: 048
     Dates: start: 201607
  5. BISOPROLOL [BISOPROLOL] [Concomitant]

REACTIONS (1)
  - Product use issue [Unknown]
